FAERS Safety Report 12174375 (Version 2)
Quarter: 2016Q2

REPORT INFORMATION
  Report Type: Spontaneous
  Country: HR (occurrence: HR)
  Receive Date: 20160312
  Receipt Date: 20160409
  Transmission Date: 20160815
  Serious: Yes (Other)
  Sender: FDA-Public Use
  Company Number: HR-AMGEN-HRVSP2016029482

PATIENT
  Age: 53 Year
  Sex: Female
  Weight: 51 kg

DRUGS (4)
  1. VITAMIN D                          /00107901/ [Concomitant]
     Active Substance: ERGOCALCIFEROL
     Dosage: 1000 IU(5 DROPS)
  2. CALCIUM [Concomitant]
     Active Substance: CALCIUM
     Dosage: 1200 TO 1500 MG
  3. NORMABEL [Concomitant]
     Active Substance: DIAZEPAM
  4. PROLIA [Suspect]
     Active Substance: DENOSUMAB
     Indication: OSTEOPOROSIS POSTMENOPAUSAL
     Dosage: 60 MG, Q6MO
     Route: 058
     Dates: start: 20160114

REACTIONS (15)
  - Musculoskeletal chest pain [Recovered/Resolved]
  - Tremor [Unknown]
  - Gastrooesophageal reflux disease [Recovered/Resolved]
  - Musculoskeletal pain [Recovered/Resolved]
  - Neck pain [Not Recovered/Not Resolved]
  - Bone pain [Unknown]
  - Odynophagia [Recovered/Resolved]
  - Pyrexia [Recovered/Resolved]
  - Enterocolitis [Recovered/Resolved]
  - Abdominal pain upper [Unknown]
  - Pollakiuria [Unknown]
  - Headache [Recovered/Resolved]
  - Dysphonia [Recovered/Resolved]
  - Myalgia [Recovered/Resolved]
  - Dysuria [Unknown]

NARRATIVE: CASE EVENT DATE: 20160122
